FAERS Safety Report 9206381 (Version 1)
Quarter: 2013Q2

REPORT INFORMATION
  Report Type: Spontaneous
  Country: DE (occurrence: DE)
  Receive Date: 20130403
  Receipt Date: 20130403
  Transmission Date: 20140414
  Serious: Yes (Other)
  Sender: FDA-Public Use
  Company Number: DE-UCBSA-081893

PATIENT
  Sex: Female

DRUGS (2)
  1. CIMZIA [Suspect]
     Dosage: UNKNOWN DOSE SINCE 1 YEAR
  2. MTX [Suspect]
     Dosage: UNKNOWN DOSE SINCE 1 YEAR

REACTIONS (2)
  - Rheumatoid nodule [Unknown]
  - Chemical burn of gastrointestinal tract [Unknown]
